FAERS Safety Report 23851419 (Version 1)
Quarter: 2024Q2

REPORT INFORMATION
  Report Type: Spontaneous
  Country: US (occurrence: US)
  Receive Date: 20240514
  Receipt Date: 20240514
  Transmission Date: 20240716
  Serious: Yes (Other)
  Sender: FDA-Public Use
  Company Number: US-IPCA LABORATORIES LIMITED-IPC-2024-US-001105

PATIENT

DRUGS (1)
  1. HYDROXYCHLOROQUINE [Suspect]
     Active Substance: HYDROXYCHLOROQUINE
     Indication: Systemic lupus erythematosus
     Dosage: 400 MILLIGRAM, QD
     Route: 065

REACTIONS (4)
  - Cystoid macular oedema [Recovering/Resolving]
  - Retinal toxicity [Recovering/Resolving]
  - Maculopathy [Recovering/Resolving]
  - Toxicity to various agents [Recovering/Resolving]
